FAERS Safety Report 6162927-2 (Version None)
Quarter: 2009Q2

REPORT INFORMATION
  Report Type: 
  Country: None (occurrence: None)
  Receive Date: 20090417
  Receipt Date: 20090406
  Transmission Date: 20091009
  Serious: Yes (Hospitalization, Other)
  Sender: FDA-Public Use
  Company Number: 2009AP001370

PATIENT
  Age: 43 Year
  Sex: Female

DRUGS (2)
  1. CARBAMAZEPINE [Suspect]
  2. ACENOCOUMAROL (ACENOCOUMAROL) [Suspect]

REACTIONS (3)
  - DRUG INTERACTION [None]
  - DRUG LEVEL BELOW THERAPEUTIC [None]
  - INTERNATIONAL NORMALISED RATIO FLUCTUATION [None]
